FAERS Safety Report 4278460-9 (Version None)
Quarter: 2004Q1

REPORT INFORMATION
  Report Type: 
  Country: None (occurrence: None)
  Receive Date: 20040102
  Receipt Date: 20031119
  Transmission Date: 20041129
  Serious: No
  Sender: FDA-Public Use
  Company Number: BLOC000736

PATIENT
  Age: 50 Year
  Sex: Female

DRUGS (1)
  1. MYOBLOC [Suspect]
     Indication: SKIN WRINKLING
     Dosage: 5,000 U INTRAMUSCULAR
     Route: 030
     Dates: start: 20031103, end: 20031103

REACTIONS (1)
  - SKIN WRINKLING [None]
